FAERS Safety Report 15295560 (Version 2)
Quarter: 2018Q3

REPORT INFORMATION
  Report Type: Spontaneous
  Country: US (occurrence: US)
  Receive Date: 20180820
  Receipt Date: 20180907
  Transmission Date: 20181010
  Serious: Yes (Life-Threatening, Hospitalization, Other)
  Sender: FDA-Public Use
  Company Number: US-DRREDDYS-USA/USA/18/0103061

PATIENT
  Age: 17 Year
  Sex: Male

DRUGS (2)
  1. GUANFACINE HYDROCHLORIDE. [Suspect]
     Active Substance: GUANFACINE HYDROCHLORIDE
     Indication: PRODUCT USED FOR UNKNOWN INDICATION
     Dosage: EXTENDED?RELEASE TABLET
     Route: 048
  2. OLANZAPINE TABLETS 2.5 MG, 5 MG, 7.5 MG, 10 MG [Suspect]
     Active Substance: OLANZAPINE
     Indication: PRODUCT USED FOR UNKNOWN INDICATION
     Dosage: 68 OLANZAPINE 5MG TABLETS (340 MG TOTAL)
     Route: 048

REACTIONS (10)
  - Intentional overdose [Unknown]
  - Orthostatic hypotension [Recovered/Resolved]
  - Depressed level of consciousness [Unknown]
  - Agitation [Unknown]
  - Suicide attempt [Unknown]
  - Dysarthria [Unknown]
  - Sinus bradycardia [Recovered/Resolved]
  - Sinus arrest [Recovered/Resolved]
  - Presyncope [Unknown]
  - Hallucination [Unknown]
